FAERS Safety Report 9712552 (Version 1)
Quarter: 2013Q4

REPORT INFORMATION
  Report Type: Spontaneous
  Country: US (occurrence: US)
  Receive Date: 20131126
  Receipt Date: 20131126
  Transmission Date: 20140711
  Serious: No
  Sender: FDA-Public Use
  Company Number: US-BRISTOL-MYERS SQUIBB COMPANY-18889014

PATIENT
  Age: 59 Year
  Sex: Female

DRUGS (7)
  1. BYDUREON [Suspect]
     Indication: TYPE 2 DIABETES MELLITUS
  2. LOSARTAN [Concomitant]
  3. AMLODIPINE [Concomitant]
  4. METFORMIN [Concomitant]
  5. METOPROLOL [Concomitant]
  6. CRESTOR [Concomitant]
  7. AMLODIPINE [Concomitant]

REACTIONS (1)
  - Dermatitis contact [Not Recovered/Not Resolved]
